FAERS Safety Report 6937713-3 (Version None)
Quarter: 2010Q3

REPORT INFORMATION
  Report Type: 
  Country: None (occurrence: None)
  Receive Date: 20100820
  Receipt Date: 20100820
  Transmission Date: 20110219
  Serious: No
  Sender: FDA-Public Use
  Company Number: None

PATIENT
  Age: 37 Year
  Sex: Female
  Weight: 58.9676 kg

DRUGS (1)
  1. CHANTIX [Suspect]
     Indication: SMOKING CESSATION THERAPY
     Dosage: ONCE TABLET DAILY PO
     Route: 048
     Dates: start: 20080707, end: 20080721

REACTIONS (6)
  - CONSTIPATION [None]
  - IRRITABILITY [None]
  - MOOD SWINGS [None]
  - PREMATURE MENOPAUSE [None]
  - SKIN DISORDER [None]
  - WEIGHT INCREASED [None]
